FAERS Safety Report 10856010 (Version 1)
Quarter: 2015Q1

REPORT INFORMATION
  Report Type: Spontaneous
  Country: US (occurrence: None)
  Receive Date: 20150218
  Receipt Date: 20150218
  Transmission Date: 20150721
  Serious: Yes (Disabling)
  Sender: FDA-Public Use
  Company Number: None

PATIENT
  Age: 65 Year
  Sex: Female
  Weight: 68.04 kg

DRUGS (1)
  1. TRADJENTA [Suspect]
     Active Substance: LINAGLIPTIN
     Indication: DRUG THERAPY
     Dosage: 1 TABLET
     Route: 048
     Dates: start: 20150130, end: 20150212

REACTIONS (4)
  - Rhinorrhoea [None]
  - Diarrhoea [None]
  - Nasal congestion [None]
  - Back pain [None]
